FAERS Safety Report 25364145 (Version 1)
Quarter: 2025Q2

REPORT INFORMATION
  Report Type: Spontaneous
  Country: US (occurrence: None)
  Receive Date: 20250521
  Receipt Date: 20250521
  Transmission Date: 20250717
  Serious: Yes (Other)
  Sender: FDA-CTU
  Company Number: None

PATIENT
  Age: 52 Year
  Sex: Female
  Weight: 90.72 kg

DRUGS (1)
  1. VENTOLIN HFA [Suspect]
     Active Substance: ALBUTEROL SULFATE
     Indication: Asthma
     Dosage: OTHER QUANTITY : 1 PUFF;?FREQUENCY : EVERY 6 HOURS;?
     Route: 048

REACTIONS (3)
  - Product dispensing error [None]
  - Product dispensing error [None]
  - Wrong product administered [None]

NARRATIVE: CASE EVENT DATE: 20250307
